FAERS Safety Report 10955136 (Version 1)
Quarter: 2015Q1

REPORT INFORMATION
  Report Type: Report from Study
  Country: CA (occurrence: CA)
  Receive Date: 20150326
  Receipt Date: 20150326
  Transmission Date: 20150721
  Serious: Yes (Hospitalization, Other)
  Sender: FDA-Public Use
  Company Number: CA-AMGEN-CANSL2015026150

PATIENT
  Age: 75 Year
  Sex: Male

DRUGS (1)
  1. NEULASTA [Suspect]
     Active Substance: PEGFILGRASTIM
     Indication: PRODUCT USED FOR UNKNOWN INDICATION
     Dosage: 10 MG/ML, UNK
     Route: 065
     Dates: start: 20150220

REACTIONS (6)
  - Haemoglobin decreased [Unknown]
  - Loss of consciousness [Recovered/Resolved]
  - Haemorrhage [Recovered/Resolved]
  - Fall [Recovered/Resolved]
  - Facial bones fracture [Not Recovered/Not Resolved]
  - Dyspnoea [Recovered/Resolved]

NARRATIVE: CASE EVENT DATE: 201503
